FAERS Safety Report 8831421 (Version 1)
Quarter: 2012Q4

REPORT INFORMATION
  Report Type: 
  Country: US (occurrence: US)
  Receive Date: 20121008
  Receipt Date: 20121008
  Transmission Date: 20130627
  Serious: No
  Sender: FDA-Public Use
  Company Number: US-VERTEX PHARMACEUTICAL INC.-AE-2012-011277

PATIENT
  Sex: Female

DRUGS (1)
  1. KALYDECO [Suspect]
     Indication: CYSTIC FIBROSIS
     Dosage: 150 mg, bid
     Route: 048
     Dates: start: 20120610, end: 20120831

REACTIONS (9)
  - Psychomotor hyperactivity [Unknown]
  - Aggression [Unknown]
  - Mental disorder [Unknown]
  - Agitation [Unknown]
  - Bipolar disorder [Unknown]
  - Paranoia [Unknown]
  - Lethargy [Unknown]
  - Fatigue [Unknown]
  - Anger [Unknown]
